FAERS Safety Report 18844001 (Version 1)
Quarter: 2021Q1

REPORT INFORMATION
  Report Type: Spontaneous
  Country: US (occurrence: US)
  Receive Date: 20210204
  Receipt Date: 20210204
  Transmission Date: 20210419
  Serious: Yes (Life-Threatening)
  Sender: FDA-Public Use
  Company Number: None

PATIENT
  Age: 58 Year
  Sex: Female
  Weight: 101.25 kg

DRUGS (10)
  1. LISINIPRIL [Concomitant]
     Active Substance: LISINOPRIL
  2. NAPROXIN SODIUM [Concomitant]
  3. VANCOMYCIN [Suspect]
     Active Substance: VANCOMYCIN
     Indication: CLOSTRIDIUM DIFFICILE INFECTION
     Dosage: ?          QUANTITY:1 CAPSULE(S);?
     Route: 048
     Dates: start: 20201210, end: 20201219
  4. METOPROLOL. [Concomitant]
     Active Substance: METOPROLOL
  5. CPAP [Concomitant]
     Active Substance: DEVICE
  6. IBUPROFEN. [Concomitant]
     Active Substance: IBUPROFEN
  7. FISH OIL [Concomitant]
     Active Substance: FISH OIL
  8. TURMERIC [Concomitant]
     Active Substance: HERBALS\TURMERIC
  9. GLUCOSAMINE [Concomitant]
     Active Substance: GLUCOSAMINE
  10. COLLAGEN [Concomitant]
     Active Substance: COLLAGEN

REACTIONS (1)
  - Allergy to chemicals [None]

NARRATIVE: CASE EVENT DATE: 20201218
